FAERS Safety Report 25071480 (Version 2)
Quarter: 2025Q2

REPORT INFORMATION
  Report Type: Spontaneous
  Country: GB (occurrence: GB)
  Receive Date: 20250312
  Receipt Date: 20250508
  Transmission Date: 20250716
  Serious: Yes (Other)
  Sender: ORGANON
  Company Number: GB-ORGANON-O2503GBR000964

PATIENT
  Age: 39 Year
  Sex: Female
  Weight: 59.2 kg

DRUGS (1)
  1. NEXPLANON [Suspect]
     Active Substance: ETONOGESTREL
     Route: 059
     Dates: start: 20230802

REACTIONS (3)
  - Device embolisation [Not Recovered/Not Resolved]
  - Complication associated with device [Recovered/Resolved]
  - Device implantation error [Not Recovered/Not Resolved]

NARRATIVE: CASE EVENT DATE: 20230802
